FAERS Safety Report 5706126-4 (Version None)
Quarter: 2008Q2

REPORT INFORMATION
  Report Type: 
  Country: None (occurrence: None)
  Receive Date: 20080415
  Receipt Date: 20080331
  Transmission Date: 20081010
  Serious: Yes (Other)
  Sender: FDA-Public Use
  Company Number: JP-GENENTECH-259074

PATIENT
  Sex: Female
  Weight: 50 kg

DRUGS (5)
  1. AVASTIN [Suspect]
     Indication: DIABETIC RETINOPATHY
     Dosage: 1.25 MG, UNK
     Route: 031
  2. BROMFENAC SODIUM [Concomitant]
     Indication: INFLAMMATION
     Dosage: 1 GTT, BID
     Route: 031
     Dates: start: 20070601
  3. CEFCAPENE PIVOXIL HYDROCHLORIDE [Concomitant]
     Indication: INFECTION PROPHYLAXIS
     Dosage: 1 TABLET, TID
     Route: 048
     Dates: start: 20070601, end: 20070605
  4. LEVOFLOXACIN [Concomitant]
     Indication: INFLAMMATION
     Dosage: 1 GTT, QID
     Route: 031
     Dates: start: 20070601
  5. RINDERON [Concomitant]
     Indication: INFLAMMATION
     Dosage: 1 GTT, QID
     Route: 031
     Dates: start: 20070601, end: 20070803

REACTIONS (1)
  - RETINAL VEIN OCCLUSION [None]
